FAERS Safety Report 5072707-7 (Version None)
Quarter: 2006Q3

REPORT INFORMATION
  Report Type: 
  Country: None (occurrence: None)
  Receive Date: 20060807
  Receipt Date: 20060803
  Transmission Date: 20061208
  Serious: Yes (Other)
  Sender: FDA-Public Use
  Company Number: US-GLAXOSMITHKLINE-A0615378A

PATIENT
  Sex: Female

DRUGS (3)
  1. BEXXAR [Suspect]
     Indication: B-CELL SMALL LYMPHOCYTIC LYMPHOMA
     Route: 042
     Dates: start: 20050420
  2. FLUDARABINE [Concomitant]
  3. RITUXAN [Concomitant]

REACTIONS (10)
  - ABDOMINAL PAIN [None]
  - ANAEMIA [None]
  - BLOOD DISORDER [None]
  - BONE DISORDER [None]
  - BONE PAIN [None]
  - HYPERPLASIA [None]
  - MUSCLE SPASMS [None]
  - NAUSEA [None]
  - NEUTROPENIA [None]
  - PLATELET COUNT DECREASED [None]
